FAERS Safety Report 25711928 (Version 1)
Quarter: 2025Q3

REPORT INFORMATION
  Report Type: Spontaneous
  Country: US (occurrence: None)
  Receive Date: 20250821
  Receipt Date: 20250821
  Transmission Date: 20251020
  Serious: No
  Sender: INCYTE
  Company Number: US-INCYTE CORPORATION-2025IN008902

PATIENT
  Age: 84 Year

DRUGS (1)
  1. JAKAFI [Suspect]
     Active Substance: RUXOLITINIB
     Indication: Chronic lymphocytic leukaemia
     Dosage: 10 MILLIGRAM, QD

REACTIONS (4)
  - Product dose omission in error [Unknown]
  - Emotional disorder [Unknown]
  - Contusion [Unknown]
  - Off label use [Unknown]
